FAERS Safety Report 10426535 (Version 1)
Quarter: 2014Q3

REPORT INFORMATION
  Report Type: Spontaneous
  Country: US (occurrence: US)
  Receive Date: 20140903
  Receipt Date: 20140903
  Transmission Date: 20150326
  Serious: No
  Sender: FDA-Public Use
  Company Number: US-PFIZER INC-2014242523

PATIENT
  Sex: Female

DRUGS (4)
  1. TIKOSYN [Suspect]
     Active Substance: DOFETILIDE
     Dosage: UNK
  2. COZAAR [Suspect]
     Active Substance: LOSARTAN POTASSIUM
     Dosage: UNK
  3. LIPITOR [Suspect]
     Active Substance: ATORVASTATIN CALCIUM
     Dosage: UNK
  4. TRAZODONE HYDROCHLORIDE. [Suspect]
     Active Substance: TRAZODONE HYDROCHLORIDE
     Dosage: UNK

REACTIONS (2)
  - Sinusitis [Unknown]
  - Tinnitus [Unknown]
